FAERS Safety Report 9164089 (Version 5)
Quarter: 2014Q1

REPORT INFORMATION
  Report Type: Report from Study
  Country: AU (occurrence: AU)
  Receive Date: 20130314
  Receipt Date: 20140325
  Transmission Date: 20141002
  Serious: Yes (Hospitalization)
  Sender: FDA-Public Use
  Company Number: AU-BRISTOL-MYERS SQUIBB COMPANY-17347964

PATIENT
  Age: 58 Year
  Sex: Male

DRUGS (2)
  1. CARBOPLATIN [Suspect]
     Indication: NON-SMALL CELL LUNG CANCER STAGE IV
     Dosage: C1: 23JAN13, 700 MG?C2: 20FEB13, 550MG?C3:01MAY13:550MG.NO OF COURSE-5.
     Route: 042
     Dates: start: 20130123
  2. PACLITAXEL [Suspect]
     Indication: NON-SMALL CELL LUNG CANCER STAGE IV
     Dosage: C1: 23JAN13, 300 MG?C2: 20FEB13, 255MG?C3:01MAY13:176MG.NO OF COURSE-5.
     Route: 042
     Dates: start: 20130123

REACTIONS (2)
  - Febrile neutropenia [Recovered/Resolved]
  - Pyrexia [Recovered/Resolved]
